FAERS Safety Report 6679633 (Version 10)
Quarter: 2012Q4

REPORT INFORMATION
  Report Type: 
  Country: US (occurrence: US)
  Receive Date: 20080624
  Receipt Date: 20121227
  Transmission Date: 20130627
  Serious: Yes (Life-Threatening, Hospitalization, Congenital Anomaly, Other)
  Sender: FDA-Public Use
  Company Number: US-PFIZER INC-2008049830

PATIENT
  Sex: Male
  Weight: 4.08 kg

DRUGS (20)
  1. ZOLOFT [Suspect]
     Indication: BIPOLAR DISORDER
     Dosage: 100 mg, daily
     Route: 064
     Dates: start: 20000127
  2. ZOLOFT [Suspect]
     Dosage: 100 mg, 1x/day
     Route: 064
     Dates: start: 20000603
  3. METOCLOPRAMIDE [Concomitant]
     Dosage: UNK
     Route: 064
  4. NORTRIPTYLINE [Concomitant]
     Dosage: UNK
     Route: 064
  5. DIAZEPAM [Concomitant]
     Dosage: UNK
     Route: 064
  6. PRENATAL VITAMINS [Concomitant]
     Dosage: one tablet daily
     Route: 064
  7. ZOFRAN [Concomitant]
     Dosage: UNK
     Route: 064
  8. ORAL REGLAN [Concomitant]
     Dosage: UNK
     Route: 064
  9. VANCENASE [Concomitant]
     Dosage: UNK
     Route: 064
  10. TERAZOL 7 [Concomitant]
     Dosage: UNK
     Route: 064
  11. DIFLUCAN [Concomitant]
     Dosage: UNK
     Route: 064
  12. ACETAMINOPHEN W/CODEINE [Concomitant]
     Dosage: UNK
     Route: 064
  13. ERYTHROMYCIN [Concomitant]
     Dosage: UNK
     Route: 064
  14. ALPRAZOLAM [Concomitant]
     Dosage: UNK
     Route: 064
  15. DOXEPIN [Concomitant]
     Dosage: UNK
     Route: 064
  16. PAXIL [Concomitant]
     Dosage: UNK
     Route: 064
  17. NORTIPTYLINE [Concomitant]
     Dosage: UNK
     Route: 064
  18. METOCLOPRAMIDE [Concomitant]
     Dosage: UNK
     Route: 064
  19. MILK OF MAGNESIA [Concomitant]
     Dosage: UNK
     Route: 064
  20. XANAX [Concomitant]
     Dosage: UNK
     Route: 064

REACTIONS (10)
  - Foetal exposure during pregnancy [Unknown]
  - Congenital anomaly [Unknown]
  - Pulmonary hypertension [Recovered/Resolved]
  - Coarctation of the aorta [Unknown]
  - Mitral valve disease [Unknown]
  - Respiratory distress [Recovered/Resolved]
  - Tricuspid valve incompetence [Unknown]
  - Patent ductus arteriosus [Unknown]
  - Right ventricular hypertrophy [Unknown]
  - Dilatation atrial [Unknown]
